FAERS Safety Report 7032448-3 (Version None)
Quarter: 2010Q4

REPORT INFORMATION
  Report Type: 
  Country: None (occurrence: None)
  Receive Date: 20101007
  Receipt Date: 20100218
  Transmission Date: 20110411
  Serious: Yes (Hospitalization)
  Sender: FDA-Public Use
  Company Number: AR-BRISTOL-MYERS SQUIBB COMPANY-14992358

PATIENT
  Age: 60 Year
  Sex: Male
  Weight: 97 kg

DRUGS (5)
  1. CETUXIMAB [Suspect]
     Indication: NON-SMALL CELL LUNG CANCER
     Dosage: 5MG/ML,RECENT INF ON 11FEB10 14JAN-18FEB2010,250MG/M2 04MAR2010-UNK,250MG/M2
     Route: 042
     Dates: start: 20100114
  2. PACLITAXEL [Suspect]
     Indication: NON-SMALL CELL LUNG CANCER
     Dosage: ON DAY 1 OF 21 DAY CYCLE.RECENT INF ON 04FEB10
     Route: 042
     Dates: start: 20100114
  3. CARBOPLATIN [Suspect]
     Indication: NON-SMALL CELL LUNG CANCER
     Dosage: 1 DF=AUC 6(ON DAY 1 OF 21 DAY CYCLE) THERAPY DATES:04FEB10;14JAN-18FEB2010;4MAR10-UNK
     Route: 042
     Dates: start: 20100114
  4. MORPHINE HCL ELIXIR [Concomitant]
     Dosage: 3DOSAGEFORM = 3 CENTIGRAM
     Route: 048
     Dates: start: 20100105
  5. DICLOFENAC SODIUM [Concomitant]
     Dosage: 05-28JAN2010:100MG 29JAN2010-ONG:50MG
     Route: 048
     Dates: start: 20100105

REACTIONS (2)
  - CELLULITIS [None]
  - STAPHYLOCOCCUS TEST POSITIVE [None]
